FAERS Safety Report 10273698 (Version 2)
Quarter: 2014Q3

REPORT INFORMATION
  Report Type: Spontaneous
  Country: US (occurrence: US)
  Receive Date: 20140702
  Receipt Date: 20140805
  Transmission Date: 20150326
  Serious: No
  Sender: FDA-Public Use
  Company Number: US-TEVA-491711USA

PATIENT
  Age: 28 Year
  Sex: Female
  Weight: 108.96 kg

DRUGS (15)
  1. ALBUTEROL. [Concomitant]
     Active Substance: ALBUTEROL
     Dosage: 2 PUFFS EVERY 4 HOURS AS NEEDED
  2. COPAXONE [Suspect]
     Active Substance: GLATIRAMER ACETATE
     Indication: MULTIPLE SCLEROSIS
     Dosage: 17.1429 MILLIGRAM DAILY; 40MG
     Dates: start: 20140610
  3. DILAUDID [Concomitant]
     Active Substance: HYDROMORPHONE HYDROCHLORIDE
     Dosage: EVERY 4 HOURS AS NEEDED
  4. FERROUS SULFATE [Concomitant]
     Active Substance: FERROUS SULFATE\FERROUS SULFATE, DRIED
     Dosage: 650 MILLIGRAM DAILY;
  5. TYSABRI [Concomitant]
     Active Substance: NATALIZUMAB
     Indication: MULTIPLE SCLEROSIS
     Dosage: 300 MG/15ML CONC INFUSION
  6. FLEXERIL [Concomitant]
     Active Substance: CYCLOBENZAPRINE HYDROCHLORIDE
     Indication: MUSCLE SPASMS
     Dosage: ONE EVERY 8 HOURS AS NEEDED
     Route: 048
  7. VITAMIN B12 [Concomitant]
     Active Substance: CYANOCOBALAMIN
     Indication: VITAMIN B12 DEFICIENCY
  8. LUMIGAN [Concomitant]
     Active Substance: BIMATOPROST
     Dosage: 1 GTT DAILY; OEN DROP EACH EYE
  9. ZOVIRAX [Concomitant]
     Active Substance: ACYCLOVIR
  10. PROTONIX [Concomitant]
     Active Substance: PANTOPRAZOLE SODIUM
     Indication: GASTROOESOPHAGEAL REFLUX DISEASE
     Dosage: 80 MILLIGRAM DAILY;
     Route: 048
  11. LORAZEPAM. [Concomitant]
     Active Substance: LORAZEPAM
     Dosage: EVERY 4 HOURS
  12. OLANZAPINE. [Concomitant]
     Active Substance: OLANZAPINE
     Dosage: 5 MILLIGRAM DAILY;
  13. MORPHINE [Concomitant]
     Active Substance: MORPHINE
     Dosage: 120 MILLIGRAM DAILY;
  14. FLUOXETINE [Concomitant]
     Active Substance: FLUOXETINE\FLUOXETINE HYDROCHLORIDE
     Dosage: 60 MILLIGRAM DAILY;
  15. MIRTAZAPINE. [Concomitant]
     Active Substance: MIRTAZAPINE
     Dosage: 10 MILLIGRAM DAILY;

REACTIONS (2)
  - Arthralgia [Not Recovered/Not Resolved]
  - Gait disturbance [Unknown]

NARRATIVE: CASE EVENT DATE: 20140610
